FAERS Safety Report 17110542 (Version 2)
Quarter: 2019Q4

REPORT INFORMATION
  Report Type: Report from Study
  Country: PT (occurrence: PT)
  Receive Date: 20191204
  Receipt Date: 20191205
  Transmission Date: 20200122
  Serious: Yes (Death)
  Sender: FDA-Public Use
  Company Number: PT-PFIZER INC-2019520002

PATIENT
  Age: 44 Year
  Sex: Female

DRUGS (17)
  1. ETOPOSIDE. [Concomitant]
     Active Substance: ETOPOSIDE
     Indication: HER-2 POSITIVE BREAST CANCER
     Dosage: UNK
     Dates: start: 200907
  2. LAPATINIB [Concomitant]
     Active Substance: LAPATINIB
     Indication: METASTASES TO LIVER
     Dosage: UNK
     Dates: start: 200804
  3. LAPATINIB [Concomitant]
     Active Substance: LAPATINIB
     Indication: METASTASES TO LUNG
  4. TRASTUZUMAB. [Suspect]
     Active Substance: TRASTUZUMAB
     Indication: METASTASES TO CENTRAL NERVOUS SYSTEM
  5. CAPECITABINE. [Concomitant]
     Active Substance: CAPECITABINE
     Indication: METASTASES TO LIVER
     Dosage: UNK
     Dates: start: 200901
  6. CAPECITABINE. [Concomitant]
     Active Substance: CAPECITABINE
     Indication: METASTASES TO LUNG
  7. EXEMESTANE. [Concomitant]
     Active Substance: EXEMESTANE
     Indication: METASTASES TO LIVER
     Dosage: UNK
     Dates: start: 200802
  8. CISPLATIN. [Concomitant]
     Active Substance: CISPLATIN
     Indication: HER-2 POSITIVE BREAST CANCER
     Dosage: UNK
     Dates: start: 200907
  9. PREDNISOLONE. [Concomitant]
     Active Substance: PREDNISOLONE
     Dosage: 25 MG, UNK
     Route: 037
  10. TRASTUZUMAB. [Suspect]
     Active Substance: TRASTUZUMAB
     Indication: METASTASES TO MENINGES
  11. PREDNISOLONE. [Concomitant]
     Active Substance: PREDNISOLONE
     Indication: HER-2 POSITIVE BREAST CANCER
     Dosage: 25 MG, WEEKLY
     Route: 037
     Dates: start: 200811
  12. CYTARABINE. [Concomitant]
     Active Substance: CYTARABINE
     Indication: HER-2 POSITIVE BREAST CANCER
     Dosage: UNK
  13. CAPECITABINE. [Concomitant]
     Active Substance: CAPECITABINE
     Indication: HER-2 POSITIVE BREAST CANCER
     Dosage: UNK
     Dates: start: 200804
  14. METHOTREXATE. [Concomitant]
     Active Substance: METHOTREXATE
     Indication: HER-2 POSITIVE BREAST CANCER
     Dosage: UNK
     Route: 037
  15. TRASTUZUMAB. [Suspect]
     Active Substance: TRASTUZUMAB
     Indication: HER-2 POSITIVE BREAST CANCER
     Dosage: UNK (CUMULATIVE DOSE OF 1,675)
     Route: 037
     Dates: start: 200810, end: 201004
  16. PREDNISOLONE. [Concomitant]
     Active Substance: PREDNISOLONE
     Dosage: 25 MG, UNK
     Route: 037
  17. LETROZOLE. [Concomitant]
     Active Substance: LETROZOLE
     Indication: METASTASES TO CENTRAL NERVOUS SYSTEM
     Dosage: UNK
     Dates: end: 200709

REACTIONS (1)
  - Meningitis listeria [Fatal]
